FAERS Safety Report 6020980-0 (Version None)
Quarter: 2008Q4

REPORT INFORMATION
  Report Type: 
  Country: None (occurrence: None)
  Receive Date: 20081224
  Receipt Date: 20081224
  Transmission Date: 20090506
  Serious: Yes (Other)
  Sender: FDA-Public Use
  Company Number: None

PATIENT
  Age: 25 Year
  Sex: Female

DRUGS (1)
  1. CHANTIX [Suspect]
     Indication: SMOKING CESSATION THERAPY
     Dosage: PO
     Route: 048

REACTIONS (5)
  - DRUG ERUPTION [None]
  - PAIN IN EXTREMITY [None]
  - PARAESTHESIA [None]
  - RASH MORBILLIFORM [None]
  - RASH PRURITIC [None]
